FAERS Safety Report 4778338-8 (Version None)
Quarter: 2005Q3

REPORT INFORMATION
  Report Type: 
  Country: None (occurrence: None)
  Receive Date: 20050922
  Receipt Date: 20050909
  Transmission Date: 20060218
  Serious: Yes (Hospitalization)
  Sender: FDA-Public Use
  Company Number: 2005BI016914

PATIENT
  Age: 57 Year
  Sex: Female

DRUGS (2)
  1. AVONEX [Suspect]
     Indication: MULTIPLE SCLEROSIS
     Dosage: 30 U G; QW; IM
     Route: 030
     Dates: start: 19950601
  2. ANTIDEPRESSANTS [Concomitant]

REACTIONS (6)
  - BRONCHITIS [None]
  - CONDITION AGGRAVATED [None]
  - DEPRESSION [None]
  - MANIA [None]
  - MULTIPLE SCLEROSIS [None]
  - OEDEMA PERIPHERAL [None]
